FAERS Safety Report 16667767 (Version 1)
Quarter: 2019Q3

REPORT INFORMATION
  Report Type: Spontaneous
  Country: US (occurrence: US)
  Receive Date: 20190805
  Receipt Date: 20190805
  Transmission Date: 20191004
  Serious: Yes (Hospitalization)
  Sender: FDA-Public Use
  Company Number: US-NOVOPROD-676248

PATIENT
  Age: 42 Year
  Sex: Female
  Weight: 149.66 kg

DRUGS (1)
  1. OZEMPIC [Suspect]
     Active Substance: SEMAGLUTIDE
     Indication: OBESITY
     Dosage: WEEKLY INJECTION IN STOMACH
     Route: 058
     Dates: start: 20190415, end: 20190625

REACTIONS (5)
  - Drug ineffective [Recovered/Resolved]
  - Off label use [Recovered/Resolved]
  - Sluggishness [Recovering/Resolving]
  - Somnolence [Recovering/Resolving]
  - Pain [Recovering/Resolving]

NARRATIVE: CASE EVENT DATE: 20190415
